FAERS Safety Report 8990910 (Version 1)
Quarter: 2012Q4

REPORT INFORMATION
  Report Type: Spontaneous
  Country: US (occurrence: None)
  Receive Date: 20121226
  Receipt Date: 20121226
  Transmission Date: 20130627
  Serious: Yes (Disabling)
  Sender: FDA-Public Use
  Company Number: None

PATIENT
  Age: 33 Year
  Sex: Male
  Weight: 99.34 kg

DRUGS (2)
  1. RISPERDAL .25MG GENERIC [Suspect]
  2. RISPERDAL .25MG GENERIC [Suspect]

REACTIONS (5)
  - Disturbance in attention [None]
  - Impaired work ability [None]
  - Anxiety [None]
  - Depression [None]
  - Panic disorder [None]
